FAERS Safety Report 7076363-8 (Version None)
Quarter: 2010Q4

REPORT INFORMATION
  Report Type: 
  Country: None (occurrence: None)
  Receive Date: 20101022
  Receipt Date: 20101012
  Transmission Date: 20110411
  Serious: No
  Sender: FDA-Public Use
  Company Number: 019888

PATIENT
  Sex: Male
  Weight: 84.8 kg

DRUGS (1)
  1. KEPPRA [Suspect]
     Indication: CONVULSION
     Dosage: (500 MG BID ORAL)
     Route: 048
     Dates: start: 20080101, end: 20100901

REACTIONS (3)
  - DRUG DOSE OMISSION [None]
  - SCRATCH [None]
  - TREATMENT NONCOMPLIANCE [None]
